FAERS Safety Report 7715784-4 (Version None)
Quarter: 2011Q3

REPORT INFORMATION
  Report Type: 
  Country: None (occurrence: None)
  Receive Date: 20110812
  Receipt Date: 20110504
  Transmission Date: 20111222
  Serious: Yes (Hospitalization)
  Sender: FDA-Public Use
  Company Number: MEDI-0013017

PATIENT
  Age: 19 Month
  Sex: Female

DRUGS (8)
  1. SINGULAIR [Concomitant]
  2. LANSOPRAZOLE [Concomitant]
  3. SYNAGIS [Suspect]
     Dates: start: 20110305, end: 20110305
  4. ASPIRIN [Concomitant]
  5. SYNAGIS [Suspect]
     Dates: start: 20110331, end: 20110331
  6. ATROVENT [Concomitant]
  7. LASIX [Concomitant]
  8. ZOPENEX (LEVOSALBUTAMOL HYDROCHLORIDE) [Concomitant]

REACTIONS (2)
  - RESPIRATORY SYNCYTIAL VIRUS TEST POSITIVE [None]
  - RESPIRATORY DISORDER [None]
